FAERS Safety Report 21441276 (Version 1)
Quarter: 2022Q4

REPORT INFORMATION
  Report Type: Spontaneous
  Country: US (occurrence: None)
  Receive Date: 20221010
  Receipt Date: 20221010
  Transmission Date: 20230113
  Serious: Yes (Hospitalization, Other)
  Sender: FDA-Public Use
  Company Number: None

PATIENT
  Age: 68 Year
  Sex: Female

DRUGS (1)
  1. LORAZEPAM [Suspect]
     Active Substance: LORAZEPAM
     Route: 048

REACTIONS (4)
  - Fall [None]
  - Head injury [None]
  - Sedation [None]
  - Cardiac disorder [None]

NARRATIVE: CASE EVENT DATE: 20221009
